FAERS Safety Report 7070600-1 (Version None)
Quarter: 2010Q4

REPORT INFORMATION
  Report Type: 
  Country: None (occurrence: None)
  Receive Date: 20101029
  Receipt Date: 20101018
  Transmission Date: 20110411
  Serious: Yes (Hospitalization)
  Sender: FDA-Public Use
  Company Number: TR-PFIZER INC-2010135793

PATIENT
  Age: 1 Day
  Sex: Male
  Weight: 3.65 kg

DRUGS (1)
  1. LUSTRAL [Suspect]
     Indication: MAJOR DEPRESSION
     Dosage: 50 MG, UNK
     Route: 064

REACTIONS (3)
  - ARRHYTHMIA [None]
  - ATRIOVENTRICULAR BLOCK [None]
  - DRUG EXPOSURE DURING PREGNANCY [None]
